FAERS Safety Report 5999640-8 (Version None)
Quarter: 2008Q4

REPORT INFORMATION
  Report Type: 
  Country: None (occurrence: None)
  Receive Date: 20081211
  Receipt Date: 20081211
  Transmission Date: 20090506
  Serious: Yes (Hospitalization)
  Sender: FDA-Public Use
  Company Number: None

PATIENT
  Sex: Female
  Weight: 81.6475 kg

DRUGS (2)
  1. HYDROXYCHLOROQUINE SULFATE [Suspect]
     Indication: ARTHRALGIA
     Dosage: 200 MG. DAILY
     Dates: start: 20081111, end: 20081125
  2. HYDROXYCHLOROQUINE SULFATE [Suspect]
     Indication: MYALGIA
     Dosage: 200 MG. DAILY
     Dates: start: 20081111, end: 20081125

REACTIONS (3)
  - BLOOD PRESSURE INCREASED [None]
  - DIZZINESS [None]
  - DYSKINESIA [None]
